FAERS Safety Report 4959645-2 (Version None)
Quarter: 2006Q1

REPORT INFORMATION
  Report Type: 
  Country: None (occurrence: None)
  Receive Date: 20060331
  Receipt Date: 20060320
  Transmission Date: 20060701
  Serious: Yes (Death)
  Sender: FDA-Public Use
  Company Number: RU-ROCHE-441031

PATIENT
  Age: 50 Year
  Sex: Male

DRUGS (4)
  1. CAPECITABINE [Suspect]
     Indication: GASTRIC CANCER
     Dosage: DOSE GIVEN DAYS 1-14, THEN ONE WEEK REST.
     Route: 048
     Dates: start: 20060206
  2. TRASTUZUMAB [Suspect]
     Indication: GASTRIC CANCER
     Route: 042
     Dates: start: 20060206, end: 20060206
  3. TRASTUZUMAB [Suspect]
     Route: 042
     Dates: start: 20060227
  4. CISPLATIN [Suspect]
     Indication: GASTRIC CANCER
     Route: 042
     Dates: start: 20060206

REACTIONS (2)
  - GASTRIC HAEMORRHAGE [None]
  - GENERAL PHYSICAL HEALTH DETERIORATION [None]
